FAERS Safety Report 7424734-X (Version None)
Quarter: 2011Q2

REPORT INFORMATION
  Report Type: 
  Country: None (occurrence: None)
  Receive Date: 20110419
  Receipt Date: 20110404
  Transmission Date: 20111010
  Serious: Yes (Hospitalization)
  Sender: FDA-Public Use
  Company Number: FR-PFIZER INC-2011001243

PATIENT
  Age: 57 Year
  Sex: Male

DRUGS (8)
  1. MIOREL [Concomitant]
  2. PREVISCAN [Interacting]
     Indication: ATRIAL FIBRILLATION
     Dosage: 25 MG, UNK
     Route: 048
  3. IBUPROFEN [Interacting]
     Indication: PAIN
     Dosage: 400 MG, 3X/DAY
     Route: 048
  4. TRAMADOL HCL [Suspect]
     Indication: HEADACHE
     Dosage: 50 MG, 3X/DAY
     Route: 048
     Dates: start: 20101115, end: 20101116
  5. DOMPERIDONE [Suspect]
     Indication: NAUSEA
     Dosage: 30 MG, UNK
     Dates: start: 20101115
  6. PROPOFAN [Concomitant]
  7. ZOPICLONE [Concomitant]
  8. FLECAINE [Concomitant]

REACTIONS (3)
  - SUBDURAL HAEMATOMA [None]
  - DRUG INTERACTION [None]
  - INTERNATIONAL NORMALISED RATIO INCREASED [None]
